FAERS Safety Report 7746644-0 (Version None)
Quarter: 2011Q3

REPORT INFORMATION
  Report Type: 
  Country: None (occurrence: None)
  Receive Date: 20110825
  Receipt Date: 20110519
  Transmission Date: 20111222
  Serious: No
  Sender: FDA-Public Use
  Company Number: 328806

PATIENT
  Age: 54 Year
  Sex: Female

DRUGS (3)
  1. VICTOZA [Suspect]
     Indication: TYPE 2 DIABETES MELLITUS
     Dosage: 1.2 MG, QD, SUBCUTANEOUS
     Route: 058
  2. LEVEMIR [Concomitant]
  3. HUMALOG [Concomitant]

REACTIONS (3)
  - CONSTIPATION [None]
  - ERUCTATION [None]
  - FLATULENCE [None]
